FAERS Safety Report 8413793-3 (Version None)
Quarter: 2012Q2

REPORT INFORMATION
  Report Type: 
  Country: None (occurrence: None)
  Receive Date: 20120605
  Receipt Date: 20120523
  Transmission Date: 20120825
  Serious: No
  Sender: FDA-Public Use
  Company Number: US-ASTRAZENECA-2012SE33708

PATIENT
  Sex: Male
  Weight: 8.5 kg

DRUGS (3)
  1. NEXIUM [Suspect]
     Indication: GASTROOESOPHAGEAL REFLUX DISEASE
     Route: 048
  2. NEXIUM [Suspect]
     Route: 048
  3. ZANTAC [Concomitant]
     Indication: PAIN

REACTIONS (7)
  - SCREAMING [None]
  - VOMITING [None]
  - PAIN [None]
  - CRYING [None]
  - OFF LABEL USE [None]
  - ERUCTATION [None]
  - DISCOMFORT [None]
